FAERS Safety Report 16102807 (Version 1)
Quarter: 2019Q1

REPORT INFORMATION
  Report Type: Report from Study
  Country: None (occurrence: US)
  Receive Date: 20190321
  Receipt Date: 20190321
  Transmission Date: 20190418
  Serious: Yes (Other)
  Sender: FDA-Public Use
  Company Number: US-ABBVIE-19K-163-2709411-00

PATIENT
  Sex: Male

DRUGS (1)
  1. MAVYRET [Suspect]
     Active Substance: GLECAPREVIR\PIBRENTASVIR
     Indication: PRODUCT USED FOR UNKNOWN INDICATION
     Route: 048
     Dates: start: 20181221

REACTIONS (4)
  - Rib fracture [Recovering/Resolving]
  - Back injury [Recovering/Resolving]
  - Road traffic accident [Recovering/Resolving]
  - Limb injury [Recovering/Resolving]
